FAERS Safety Report 9714297 (Version 3)
Quarter: 2015Q3

REPORT INFORMATION
  Report Type: Spontaneous
  Country: US (occurrence: US)
  Receive Date: 20131126
  Receipt Date: 20150803
  Transmission Date: 20151125
  Serious: Yes (Hospitalization)
  Sender: FDA-Public Use
  Company Number: US-GILEAD-2008-0019332

PATIENT
  Age: 83 Year
  Sex: Female
  Weight: 74.84 kg

DRUGS (9)
  1. REVATIO [Concomitant]
     Active Substance: SILDENAFIL CITRATE
     Route: 048
  2. ALBUTEROL INHALER [Concomitant]
     Active Substance: ALBUTEROL
     Route: 055
  3. IMDUR [Concomitant]
     Active Substance: ISOSORBIDE MONONITRATE
     Route: 048
  4. NITROGLYCERIN. [Concomitant]
     Active Substance: NITROGLYCERIN
     Route: 048
  5. LANTUS [Concomitant]
     Active Substance: INSULIN GLARGINE
     Dosage: 100 U/ML
     Route: 058
  6. RESTORIL [Concomitant]
     Active Substance: TEMAZEPAM
     Route: 048
  7. LETAIRIS [Suspect]
     Active Substance: AMBRISENTAN
     Route: 048
  8. LETAIRIS [Suspect]
     Active Substance: AMBRISENTAN
     Indication: PULMONARY ARTERIAL HYPERTENSION
     Route: 048
     Dates: start: 20080212
  9. LISINOPRIL. [Concomitant]
     Active Substance: LISINOPRIL
     Route: 048

REACTIONS (1)
  - Fluid overload [Unknown]
